FAERS Safety Report 8052529-5 (Version None)
Quarter: 2012Q1

REPORT INFORMATION
  Report Type: 
  Country: None (occurrence: None)
  Receive Date: 20120118
  Receipt Date: 20120113
  Transmission Date: 20120608
  Serious: Yes (Death)
  Sender: FDA-Public Use
  Company Number: US-CELGENEUS-163-21880-12011476

PATIENT
  Sex: Female

DRUGS (9)
  1. GUAIFENESIN [Concomitant]
     Route: 065
  2. REVLIMID [Suspect]
     Dosage: 10 MILLIGRAM
     Route: 048
     Dates: start: 20110411
  3. DILTIAZEM HCL [Concomitant]
     Route: 065
  4. ZOFRAN [Concomitant]
     Route: 065
  5. ALKERAN [Concomitant]
     Route: 065
  6. PREDNISONE TAB [Concomitant]
     Route: 065
  7. NEXIUM [Concomitant]
     Route: 065
  8. PROMETHAZINE HCI [Concomitant]
     Route: 065
  9. METFORMIN HCL [Concomitant]
     Route: 065

REACTIONS (1)
  - DEATH [None]
